FAERS Safety Report 6051495-1 (Version None)
Quarter: 2009Q1

REPORT INFORMATION
  Report Type: 
  Country: None (occurrence: None)
  Receive Date: 20090126
  Receipt Date: 20090116
  Transmission Date: 20090719
  Serious: Yes (Death)
  Sender: FDA-Public Use
  Company Number: A0764919A

PATIENT
  Age: 68 Year
  Sex: Male
  Weight: 126.4 kg

DRUGS (4)
  1. AVANDIA [Suspect]
     Indication: TYPE 2 DIABETES MELLITUS
     Dosage: 4MG TWICE PER DAY
     Route: 048
     Dates: end: 20060525
  2. METFORMIN [Concomitant]
     Dates: end: 20060525
  3. NPH [Concomitant]
     Dosage: 24UNIT PER DAY
     Dates: start: 20030101, end: 20060525
  4. DIABETA [Concomitant]
     Dates: start: 19970101, end: 20060525

REACTIONS (2)
  - DEATH [None]
  - MYOCARDIAL INFARCTION [None]
